FAERS Safety Report 14198310 (Version 1)
Quarter: 2017Q4

REPORT INFORMATION
  Report Type: Report from Study
  Country: US (occurrence: US)
  Receive Date: 20171117
  Receipt Date: 20171117
  Transmission Date: 20180321
  Serious: Yes (Hospitalization)
  Sender: FDA-Public Use
  Company Number: US-BIOGEN-2012BI041866

PATIENT
  Age: 29 Year
  Sex: Female

DRUGS (2)
  1. AVONEX [Suspect]
     Active Substance: INTERFERON BETA-1A
     Route: 030
  2. AVONEX [Suspect]
     Active Substance: INTERFERON BETA-1A
     Indication: MULTIPLE SCLEROSIS
     Route: 030
     Dates: start: 20120501, end: 201209

REACTIONS (7)
  - Diplopia [Unknown]
  - Dizziness [Unknown]
  - Multiple sclerosis relapse [Recovered/Resolved]
  - Headache [Unknown]
  - Eye disorder [Recovered/Resolved]
  - Back pain [Unknown]
  - Vision blurred [Recovered/Resolved]

NARRATIVE: CASE EVENT DATE: 201208
